FAERS Safety Report 8502317-8 (Version None)
Quarter: 2012Q3

REPORT INFORMATION
  Report Type: 
  Country: None (occurrence: None)
  Receive Date: 20120711
  Receipt Date: 20120510
  Transmission Date: 20120928
  Serious: Yes (Death, Other)
  Sender: FDA-Public Use
  Company Number: US-COVIDIEN/TYCO HEALTHCARE/MALLINCKRODT-T201201722

PATIENT
  Age: 13 Year
  Sex: Male
  Weight: 47.619 kg

DRUGS (1)
  1. OXYCODONE HCL [Suspect]
     Dosage: UNK
     Dates: start: 20101204

REACTIONS (2)
  - DRUG DIVERSION [None]
  - OVERDOSE [None]
